FAERS Safety Report 7385154-X (Version None)
Quarter: 2011Q1

REPORT INFORMATION
  Report Type: 
  Country: None (occurrence: None)
  Receive Date: 20110330
  Receipt Date: 20110323
  Transmission Date: 20110831
  Serious: Yes (Hospitalization)
  Sender: FDA-Public Use
  Company Number: US-SANOFI-AVENTIS-2011SA018188

PATIENT
  Age: 75 Year
  Sex: Female

DRUGS (8)
  1. PLAVIX [Suspect]
     Route: 048
     Dates: start: 20101201
  2. LISINOPRIL [Concomitant]
  3. AMLODIPINE [Concomitant]
  4. SIMVASTATIN [Concomitant]
  5. MULTIVITAMIN [Concomitant]
  6. PLAVIX [Suspect]
     Route: 048
     Dates: start: 20101201
  7. METFORMIN [Concomitant]
  8. METOPROLOL TARTRATE [Concomitant]

REACTIONS (2)
  - PULMONARY OEDEMA [None]
  - VISION BLURRED [None]
